FAERS Safety Report 10512717 (Version 3)
Quarter: 2017Q4

REPORT INFORMATION
  Report Type: Report from Study
  Country: KR (occurrence: KR)
  Receive Date: 20141012
  Receipt Date: 20171213
  Transmission Date: 20180320
  Serious: Yes (Death, Life-Threatening, Hospitalization, Other)
  Sender: FDA-Public Use
  Company Number: KR-BRISTOL-MYERS SQUIBB COMPANY-17005760

PATIENT
  Age: 71 Year
  Sex: Male

DRUGS (10)
  1. BLINDED IPILIMUMAB [Suspect]
     Active Substance: IPILIMUMAB
     Indication: NON-SMALL CELL LUNG CANCER
     Dosage: 4JUL12:607MG,COURSE:1,24-24JUL12:491MG,IV.17-17AUG12:305MG,COURSE:3,5-5SEP12:526MG  17-17AUG12:524MG
     Route: 042
     Dates: start: 20120704, end: 20120905
  2. BLINDED IPILIMUMAB [Suspect]
     Active Substance: IPILIMUMAB
     Indication: NON-SMALL CELL LUNG CANCER
     Dosage: 4JUL12: 299MG,24-24JUL2012:306MG,5-5SEP12:303MG  17-17AUG12:305MG
     Route: 042
     Dates: start: 20120704, end: 20120905
  3. BLINDED PLACEBO [Suspect]
     Active Substance: INVESTIGATIONAL PRODUCT
     Indication: NON-SMALL CELL LUNG CANCER
     Dosage: 17AUG12:131.6ML,COURSE:4.5-5SEP12:130.6ML
     Route: 042
     Dates: start: 20120817, end: 20120905
  4. BLINDED IPILIMUMAB [Suspect]
     Active Substance: IPILIMUMAB
     Indication: NON-SMALL CELL LUNG CANCER
     Dosage: 17AUG12:131.6ML,COURSE:4.5-5SEP12:130.6ML
     Route: 042
     Dates: start: 20120817, end: 20120905
  5. BLINDED PACLITAXEL [Suspect]
     Active Substance: PACLITAXEL
     Indication: NON-SMALL CELL LUNG CANCER
     Dosage: 4JUL12: 299MG,24-24JUL2012:306MG,5-5SEP12:303MG  17-17AUG12:305MG
     Route: 042
     Dates: start: 20120704, end: 20120905
  6. MEGESTROL [Concomitant]
     Active Substance: MEGESTROL
     Indication: PRODUCT USED FOR UNKNOWN INDICATION
     Dosage: UNK
     Route: 065
     Dates: start: 20120704
  7. BLINDED PLACEBO [Suspect]
     Active Substance: INVESTIGATIONAL PRODUCT
     Indication: NON-SMALL CELL LUNG CANCER
     Dosage: 4JUL12:607MG,COURSE:1,24-24JUL12:491MG,IV.17-17AUG12:305MG,COURSE:3,5-5SEP12:526MG  17-17AUG12:524MG
     Route: 042
     Dates: start: 20120704, end: 20120905
  8. BLINDED CARBOPLATIN [Suspect]
     Active Substance: CARBOPLATIN
     Indication: NON-SMALL CELL LUNG CANCER
     Dosage: 4JUL12:607MG,COURSE:1,24-24JUL12:491MG,IV.17-17AUG12:305MG,COURSE:3,5-5SEP12:526MG  17-17AUG12:524MG
     Route: 042
     Dates: start: 20120704, end: 20120905
  9. METOCLOPRAMIDE. [Concomitant]
     Active Substance: METOCLOPRAMIDE
     Indication: PRODUCT USED FOR UNKNOWN INDICATION
     Dosage: 05SEP2012.
     Route: 065
     Dates: start: 20120704
  10. BLINDED PLACEBO [Suspect]
     Active Substance: INVESTIGATIONAL PRODUCT
     Indication: NON-SMALL CELL LUNG CANCER
     Dosage: 4JUL12: 299MG,24-24JUL2012:306MG,5-5SEP12:303MG  17-17AUG12:305MG
     Route: 042
     Dates: start: 20120704, end: 20120905

REACTIONS (3)
  - Acute hepatic failure [Fatal]
  - Acute kidney injury [Fatal]
  - Pneumonia [Fatal]

NARRATIVE: CASE EVENT DATE: 20120926
